FAERS Safety Report 5981850-7 (Version None)
Quarter: 2008Q4

REPORT INFORMATION
  Report Type: 
  Country: None (occurrence: None)
  Receive Date: 20081202
  Receipt Date: 20081118
  Transmission Date: 20090506
  Serious: Yes (Death)
  Sender: FDA-Public Use
  Company Number: KV200800301

PATIENT
  Age: 50 Year
  Sex: Male

DRUGS (1)
  1. MORPHINE SULFATE(MORPHINE SULFATE) TABLET, 30MG [Suspect]
     Indication: PAIN IN EXTREMITY
     Dosage: 30 MG, ORAL
     Route: 048
     Dates: start: 20071001, end: 20080101

REACTIONS (3)
  - LUNG NEOPLASM MALIGNANT [None]
  - MALIGNANT NEOPLASM PROGRESSION [None]
  - PRODUCT QUALITY ISSUE [None]
